FAERS Safety Report 5197125-2 (Version None)
Quarter: 2007Q1

REPORT INFORMATION
  Report Type: 
  Country: None (occurrence: None)
  Receive Date: 20070103
  Receipt Date: 20070102
  Transmission Date: 20070707
  Serious: Yes (Life-Threatening, Hospitalization, Other)
  Sender: FDA-Public Use
  Company Number: US-GLAXOSMITHKLINE-A0630628A

PATIENT
  Age: 67 Year
  Sex: Male
  Weight: 74.5 kg

DRUGS (7)
  1. ADVAIR DISKUS 100/50 [Suspect]
     Indication: CHRONIC OBSTRUCTIVE PULMONARY DISEASE
     Dosage: 2PUFF UNKNOWN
     Route: 055
     Dates: start: 20061205, end: 20061205
  2. SPIRIVA [Concomitant]
     Indication: CHRONIC OBSTRUCTIVE PULMONARY DISEASE
     Dosage: 1PUFF PER DAY
     Route: 055
  3. TERBUTALINE SULFATE [Concomitant]
     Indication: ASTHMA
     Dosage: 5MG TWICE PER DAY
     Route: 048
  4. LEVAQUIN [Concomitant]
     Indication: BRONCHITIS
     Route: 048
     Dates: start: 20061205, end: 20061205
  5. SINGULAIR [Concomitant]
     Indication: ASTHMA
     Route: 048
  6. THEOPHYLLINE [Concomitant]
     Indication: ASTHMA
     Dosage: 300MG TWICE PER DAY
  7. ALBUTEROL [Concomitant]
     Indication: ASTHMA
     Dosage: 2PUFF AS REQUIRED
     Route: 055

REACTIONS (3)
  - CHRONIC OBSTRUCTIVE PULMONARY DISEASE [None]
  - VITAL FUNCTIONS ABNORMAL [None]
  - VOMITING [None]
